FAERS Safety Report 13044132 (Version 1)
Quarter: 2016Q4

REPORT INFORMATION
  Report Type: Spontaneous
  Country: US (occurrence: US)
  Receive Date: 20161219
  Receipt Date: 20161219
  Transmission Date: 20170207
  Serious: Yes (Death)
  Sender: FDA-Public Use
  Company Number: None

PATIENT
  Age: 70 Year
  Sex: Male

DRUGS (1)
  1. METHIMAZOLE. [Suspect]
     Active Substance: METHIMAZOLE
     Route: 048
     Dates: start: 20160212, end: 20160420

REACTIONS (1)
  - Agranulocytosis [None]

NARRATIVE: CASE EVENT DATE: 20160420
